FAERS Safety Report 15890043 (Version 1)
Quarter: 2019Q1

REPORT INFORMATION
  Report Type: Spontaneous
  Country: FR (occurrence: FR)
  Receive Date: 20190130
  Receipt Date: 20190130
  Transmission Date: 20190417
  Serious: Yes (Hospitalization)
  Sender: FDA-Public Use
  Company Number: FR-TEVA-2019-FR-1004035

PATIENT
  Age: 77 Year
  Sex: Female

DRUGS (3)
  1. ORACILLINE [Suspect]
     Active Substance: PENICILLIN V
     Indication: PLASMA CELL MYELOMA
     Dosage: NOT INFORMED
     Route: 048
     Dates: start: 20181204, end: 20181212
  2. ALLOPURINOL. [Suspect]
     Active Substance: ALLOPURINOL
     Indication: PLASMA CELL MYELOMA
     Dosage: NOT INFORMED
     Route: 048
     Dates: start: 20181204, end: 20181212
  3. REVLIMID [Suspect]
     Active Substance: LENALIDOMIDE
     Indication: PLASMA CELL MYELOMA
     Dosage: NOT INFORMED
     Route: 048
     Dates: start: 20181204, end: 20181212

REACTIONS (1)
  - Drug reaction with eosinophilia and systemic symptoms [Recovered/Resolved]

NARRATIVE: CASE EVENT DATE: 20181212
